FAERS Safety Report 10187179 (Version 2)
Quarter: 2014Q2

REPORT INFORMATION
  Report Type: Spontaneous
  Country: US (occurrence: US)
  Receive Date: 20140522
  Receipt Date: 20140522
  Transmission Date: 20141212
  Serious: Yes (Death)
  Sender: FDA-Public Use
  Company Number: US-ROCHE-1291475

PATIENT
  Sex: Female

DRUGS (15)
  1. XELODA [Suspect]
     Indication: BREAST CANCER
     Dosage: 1-14 OF A 21-DAY CYCLE
     Route: 048
     Dates: start: 20131004
  2. PRAVASTATIN [Concomitant]
  3. LORAZEPAM [Concomitant]
  4. ASPIRIN [Concomitant]
  5. METFORMIN [Concomitant]
  6. PANTOPRAZOLE [Concomitant]
  7. FOLIC ACID [Concomitant]
  8. ALTACE [Concomitant]
  9. ACETAMINOPHEN [Concomitant]
  10. CALTRATE [Concomitant]
  11. EXEMESTANE [Concomitant]
  12. COMPAZINE [Concomitant]
  13. ZOFRAN [Concomitant]
  14. PROCHLORPERAZINE [Concomitant]
  15. ONDANSETRON [Concomitant]

REACTIONS (4)
  - Death [Fatal]
  - Constipation [Unknown]
  - Diarrhoea [Unknown]
  - Constipation [Unknown]
